FAERS Safety Report 5768600-4 (Version None)
Quarter: 2008Q2

REPORT INFORMATION
  Report Type: 
  Country: None (occurrence: None)
  Receive Date: 20080612
  Receipt Date: 20080305
  Transmission Date: 20081010
  Serious: No
  Sender: FDA-Public Use
  Company Number: US-ABBOTT-08P-163-0441655-00

PATIENT
  Sex: Female
  Weight: 95.34 kg

DRUGS (8)
  1. HUMIRA [Suspect]
     Indication: RHEUMATOID ARTHRITIS
     Route: 058
     Dates: start: 20071201, end: 20080101
  2. HUMIRA [Suspect]
     Route: 058
     Dates: start: 20080201
  3. FEXOFENADINE [Concomitant]
     Indication: HYPERSENSITIVITY
  4. RABEPRAZOLE SODIUM [Concomitant]
     Indication: DYSPEPSIA
  5. NORTRIPTYLINE HYDROCHLORIDE [Concomitant]
     Indication: IRRITABLE BOWEL SYNDROME
  6. CALCIUM [Concomitant]
     Indication: DRUG USE FOR UNKNOWN INDICATION
  7. SULINDAC [Concomitant]
     Indication: ANTIINFLAMMATORY THERAPY
  8. ONE A DAY VITAMIN [Concomitant]
     Indication: DRUG USE FOR UNKNOWN INDICATION

REACTIONS (3)
  - INJECTION SITE ERYTHEMA [None]
  - INJECTION SITE IRRITATION [None]
  - INJECTION SITE PRURITUS [None]
